FAERS Safety Report 4463528-4 (Version None)
Quarter: 2004Q3

REPORT INFORMATION
  Report Type: 
  Country: None (occurrence: None)
  Receive Date: 20040928
  Receipt Date: 20040915
  Transmission Date: 20050211
  Serious: Yes (Hospitalization, Other)
  Sender: FDA-Public Use
  Company Number: 2004042233

PATIENT
  Age: 69 Year
  Sex: Female
  Weight: 46 kg

DRUGS (7)
  1. LIPITOR [Suspect]
     Indication: HYPERCHOLESTEROLAEMIA
     Dosage: 5 MG, ORAL
     Route: 048
     Dates: start: 20040406, end: 20040604
  2. LIPITOR [Suspect]
     Indication: HYPERLIPIDAEMIA
     Dosage: 5 MG, ORAL
     Route: 048
     Dates: start: 20040406, end: 20040604
  3. AMLODIPINE [Suspect]
     Indication: HYPERTENSION
     Dosage: 5 MG (1 IN 1 D), ORAL
     Route: 048
     Dates: start: 20040421
  4. ACETAMINOPHEN [Suspect]
     Indication: NASOPHARYNGITIS
     Dosage: 1200 MG (3 IN 1 D), ORAL
     Route: 048
     Dates: start: 20040602, end: 20040604
  5. TRANEXAMIC ACID (TRANEXAMIC ACID) [Suspect]
     Indication: NASOPHARYNGITIS
     Dosage: 750 MG (3 IN 1 D), ORAL
     Route: 048
     Dates: start: 20040602, end: 20040604
  6. BROTIZOLAM (BROTIZOLAM) [Suspect]
     Indication: INSOMNIA
     Dosage: 0.25 MG, ORAL
     Route: 048
     Dates: start: 20021203, end: 20040604
  7. METOPROLOL TARTRATE [Concomitant]

REACTIONS (19)
  - ABDOMINAL PAIN UPPER [None]
  - AMNESIA [None]
  - ANOREXIA [None]
  - BLOOD ALKALINE PHOSPHATASE INCREASED [None]
  - BLOOD CREATINE PHOSPHOKINASE INCREASED [None]
  - BLOOD LACTATE DEHYDROGENASE INCREASED [None]
  - DEHYDRATION [None]
  - DEPRESSED LEVEL OF CONSCIOUSNESS [None]
  - DISORIENTATION [None]
  - EPIGASTRIC DISCOMFORT [None]
  - INCOHERENT [None]
  - INFECTION [None]
  - MALAISE [None]
  - MYALGIA [None]
  - MYOCARDIAL INFARCTION [None]
  - NASOPHARYNGITIS [None]
  - PYREXIA [None]
  - TREATMENT NONCOMPLIANCE [None]
  - VIRAL INFECTION [None]
